FAERS Safety Report 25185254 (Version 1)
Quarter: 2025Q2

REPORT INFORMATION
  Report Type: Spontaneous
  Country: US (occurrence: US)
  Receive Date: 20250410
  Receipt Date: 20250410
  Transmission Date: 20250716
  Serious: Yes (Other)
  Sender: PFIZER
  Company Number: US-PFIZER INC-202500046286

PATIENT
  Age: 63 Year
  Sex: Female

DRUGS (2)
  1. LITFULO [Suspect]
     Active Substance: RITLECITINIB TOSYLATE
     Indication: Alopecia totalis
     Route: 048
  2. LITFULO [Suspect]
     Active Substance: RITLECITINIB TOSYLATE
     Indication: Alopecia

REACTIONS (6)
  - Chronic cutaneous lupus erythematosus [Unknown]
  - Sjogren^s syndrome [Unknown]
  - Loss of consciousness [Unknown]
  - Blood immunoglobulin G decreased [Unknown]
  - Vertigo [Unknown]
  - Visual impairment [Unknown]

NARRATIVE: CASE EVENT DATE: 20250401
